FAERS Safety Report 13240534 (Version 1)
Quarter: 2017Q1

REPORT INFORMATION
  Report Type: Spontaneous
  Country: US (occurrence: US)
  Receive Date: 20170216
  Receipt Date: 20170216
  Transmission Date: 20170428
  Serious: No
  Sender: FDA-Public Use
  Company Number: US-RELYPSA-RLY2016003428

PATIENT
  Age: 68 Year
  Sex: Male

DRUGS (17)
  1. LIPITOR [Concomitant]
     Active Substance: ATORVASTATIN CALCIUM
  2. NORVASC [Concomitant]
     Active Substance: AMLODIPINE BESYLATE
  3. COZAAR [Concomitant]
     Active Substance: LOSARTAN POTASSIUM
  4. RENVELA [Concomitant]
     Active Substance: SEVELAMER CARBONATE
  5. SODIUM BICARBONATE. [Concomitant]
     Active Substance: SODIUM BICARBONATE
  6. AVODART [Concomitant]
     Active Substance: DUTASTERIDE
  7. VELTASSA [Suspect]
     Active Substance: PATIROMER
     Dosage: 16.8 G, W/F/SUN
     Route: 048
     Dates: start: 20160629, end: 201612
  8. VITAMIN D2 [Concomitant]
     Active Substance: ERGOCALCIFEROL
  9. TYLENOL PM EXTRA STRENGTH [Concomitant]
     Active Substance: ACETAMINOPHEN\DIPHENHYDRAMINE HYDROCHLORIDE
  10. VITAMIN B1 [Concomitant]
     Active Substance: THIAMINE HYDROCHLORIDE
  11. COREG [Concomitant]
     Active Substance: CARVEDILOL
  12. ULORIC [Concomitant]
     Active Substance: FEBUXOSTAT
  13. MELATONIN [Concomitant]
     Active Substance: MELATONIN
  14. MAGNESIUM OXIDE. [Concomitant]
     Active Substance: MAGNESIUM OXIDE
  15. FLOMAX [Concomitant]
     Active Substance: TAMSULOSIN HYDROCHLORIDE
  16. CALCIUM CARBONATE. [Concomitant]
     Active Substance: CALCIUM CARBONATE
  17. VELTASSA [Suspect]
     Active Substance: PATIROMER
     Indication: HYPERKALAEMIA
     Dosage: 8.4 G, MON-TUES
     Route: 048
     Dates: start: 20160629, end: 201612

REACTIONS (6)
  - Dry mouth [Not Recovered/Not Resolved]
  - Eye pruritus [Not Recovered/Not Resolved]
  - Drug dose omission [Recovered/Resolved]
  - Inappropriate schedule of drug administration [Recovered/Resolved]
  - Nasal congestion [Not Recovered/Not Resolved]
  - Drug ineffective [Unknown]

NARRATIVE: CASE EVENT DATE: 2016
